FAERS Safety Report 9776699 (Version 1)
Quarter: 2013Q4

REPORT INFORMATION
  Report Type: Report from Study
  Country: TR (occurrence: TR)
  Receive Date: 20131220
  Receipt Date: 20131220
  Transmission Date: 20140711
  Serious: Yes (Other)
  Sender: FDA-Public Use
  Company Number: PHHY2013TR148355

PATIENT
  Age: 13 Year
  Sex: Male
  Weight: 29 kg

DRUGS (1)
  1. OMNITROPE [Suspect]
     Indication: GROWTH HORMONE DEFICIENCY
     Dosage: 1 MG
     Route: 058
     Dates: start: 20130620

REACTIONS (2)
  - Injection site pain [Not Recovered/Not Resolved]
  - Feeling abnormal [Not Recovered/Not Resolved]
